FAERS Safety Report 8440270 (Version 4)
Quarter: 2013Q3

REPORT INFORMATION
  Report Type: Spontaneous
  Country: US (occurrence: US)
  Receive Date: 20120305
  Receipt Date: 20130807
  Transmission Date: 20140515
  Serious: Yes (Life-Threatening, Hospitalization)
  Sender: FDA-Public Use
  Company Number: US-US-EMD SERONO, INC.-7116187

PATIENT
  Age: 54 Year
  Sex: Male

DRUGS (2)
  1. REBIF [Suspect]
     Indication: MULTIPLE SCLEROSIS
     Route: 058
     Dates: start: 20120109
  2. REBIF [Suspect]
     Route: 058
     Dates: start: 201203

REACTIONS (5)
  - Pneumonia aspiration [Recovered/Resolved]
  - Grand mal convulsion [Unknown]
  - Drug hypersensitivity [Unknown]
  - Multiple sclerosis relapse [Recovering/Resolving]
  - Injection site pain [Unknown]
